FAERS Safety Report 21374227 (Version 1)
Quarter: 2022Q3

REPORT INFORMATION
  Report Type: Spontaneous
  Country: AU (occurrence: AU)
  Receive Date: 20220926
  Receipt Date: 20220926
  Transmission Date: 20221027
  Serious: Yes (Other)
  Sender: FDA-Public Use
  Company Number: AU-ORGANON-O2208AUS000451

PATIENT
  Age: 21 Year
  Sex: Female

DRUGS (2)
  1. ETONOGESTREL [Suspect]
     Active Substance: ETONOGESTREL
     Dosage: 1 IMPLANT; LEFT UPPER ARM (OVER THE TRICEPS MUSCLE- APPROXIMATELY 10 CM  FROM THE MEDIAL EPICONDYLE
     Route: 059
     Dates: start: 202111
  2. ESCITALOPRAM [Concomitant]
     Active Substance: ESCITALOPRAM OXALATE
     Dosage: UNK

REACTIONS (7)
  - General anaesthesia [Unknown]
  - Abnormal uterine bleeding [Not Recovered/Not Resolved]
  - Device issue [Not Recovered/Not Resolved]
  - Device placement issue [Not Recovered/Not Resolved]
  - Complication of device removal [Not Recovered/Not Resolved]
  - Device deployment issue [Not Recovered/Not Resolved]
  - Complication associated with device [Recovered/Resolved]

NARRATIVE: CASE EVENT DATE: 20211101
